FAERS Safety Report 9174107 (Version 1)
Quarter: 2013Q1

REPORT INFORMATION
  Report Type: Spontaneous
  Country: US (occurrence: None)
  Receive Date: 20130318
  Receipt Date: 20130318
  Transmission Date: 20140127
  Serious: No
  Sender: FDA-Public Use
  Company Number: None

PATIENT
  Age: 54 Year
  Sex: Male
  Weight: 92.99 kg

DRUGS (1)
  1. ALKA SELTZER [Suspect]

REACTIONS (2)
  - Product label issue [None]
  - Product packaging issue [None]
